FAERS Safety Report 5943215-3 (Version None)
Quarter: 2008Q4

REPORT INFORMATION
  Report Type: 
  Country: None (occurrence: None)
  Receive Date: 20081106
  Receipt Date: 20081030
  Transmission Date: 20090506
  Serious: Yes (Other)
  Sender: FDA-Public Use
  Company Number: B0544511A

PATIENT
  Age: 71 Year
  Sex: Male

DRUGS (10)
  1. AUGMENTIN '125' [Suspect]
     Indication: BRONCHOPNEUMONIA
     Dosage: 1200MG THREE TIMES PER DAY
     Route: 042
     Dates: start: 20080806, end: 20080807
  2. MYCOSTATIN SUSPENSION [Suspect]
     Indication: DRUG USE FOR UNKNOWN INDICATION
     Route: 048
     Dates: start: 20080727, end: 20080806
  3. ARICEPT [Suspect]
     Indication: DEMENTIA ALZHEIMER'S TYPE
     Dosage: 5MG PER DAY
     Route: 065
     Dates: start: 20080801, end: 20080806
  4. FOSAMAX [Suspect]
     Indication: DRUG USE FOR UNKNOWN INDICATION
     Dosage: 70MG WEEKLY
     Route: 048
     Dates: start: 20080726, end: 20080806
  5. ROCALTROL [Suspect]
     Indication: DRUG USE FOR UNKNOWN INDICATION
     Route: 048
     Dates: start: 20080728, end: 20080806
  6. NEURONTIN [Suspect]
     Indication: RESTLESSNESS
     Dosage: 100MG TWICE PER DAY
     Route: 048
     Dates: start: 20080720, end: 20080806
  7. MS CONTIN [Concomitant]
     Dosage: 20MG PER DAY
     Route: 048
     Dates: start: 20080724, end: 20080806
  8. EFFEXOR [Concomitant]
     Dosage: 75MG TWICE PER DAY
     Route: 048
     Dates: end: 20080806
  9. TRUSOPT [Concomitant]
     Dosage: 1DROP TWICE PER DAY
     Route: 047
     Dates: end: 20080806
  10. TIMOPTIC [Concomitant]
     Indication: GLAUCOMA
     Dosage: 1DROP TWICE PER DAY
     Route: 047
     Dates: end: 20080806

REACTIONS (15)
  - CHEILITIS [None]
  - DRUG ERUPTION [None]
  - DYSPHAGIA [None]
  - EATING DISORDER [None]
  - ERYTHEMA MULTIFORME [None]
  - HAEMORRHAGE [None]
  - HERPES SIMPLEX [None]
  - INFLAMMATION [None]
  - LIP HAEMORRHAGE [None]
  - MUCOSAL EROSION [None]
  - ORAL MUCOSA EROSION [None]
  - RASH PRURITIC [None]
  - STOMATITIS [None]
  - TOXIC EPIDERMAL NECROLYSIS [None]
  - VIRAL INFECTION [None]
